FAERS Safety Report 15624531 (Version 1)
Quarter: 2018Q4

REPORT INFORMATION
  Report Type: Spontaneous
  Country: US (occurrence: US)
  Receive Date: 20181116
  Receipt Date: 20181116
  Transmission Date: 20190205
  Serious: No
  Sender: FDA-Public Use
  Company Number: US-AMGEN-USASP2018163056

PATIENT
  Sex: Female

DRUGS (2)
  1. ENBREL [Suspect]
     Active Substance: ETANERCEPT
     Indication: PRODUCT USED FOR UNKNOWN INDICATION
     Dosage: UNK
     Route: 065
  2. SECUKINUMAB. [Concomitant]
     Active Substance: SECUKINUMAB
     Dosage: UNK

REACTIONS (3)
  - Drug ineffective [Unknown]
  - Pain [Not Recovered/Not Resolved]
  - Tendonitis [Unknown]
